FAERS Safety Report 6431951-4 (Version None)
Quarter: 2009Q4

REPORT INFORMATION
  Report Type: 
  Country: None (occurrence: None)
  Receive Date: 20091109
  Receipt Date: 20091029
  Transmission Date: 20100525
  Serious: Yes (Hospitalization)
  Sender: FDA-Public Use
  Company Number: KR-EISAI INC.-E3810-03274-SPO-KR

PATIENT
  Age: 56 Year
  Sex: Male

DRUGS (1)
  1. PARIET (RABEPRAZOLE) [Suspect]
     Route: 048

REACTIONS (2)
  - LYMPHADENOCYST [None]
  - THYROID CANCER [None]
